FAERS Safety Report 16741682 (Version 1)
Quarter: 2019Q4

REPORT INFORMATION
  Report Type: Spontaneous
  Country: US (occurrence: US)
  Receive Date: 20190826
  Receipt Date: 20190826
  Transmission Date: 20200122
  Serious: Yes (Life-Threatening, Disabling, Other)
  Sender: FDA-Public Use
  Company Number: None

PATIENT
  Age: 38 Year
  Sex: Male
  Weight: 97.65 kg

DRUGS (4)
  1. GABAPENTIN 300 MG CAPS [Suspect]
     Active Substance: GABAPENTIN
     Indication: INJURY
     Dosage: ?          QUANTITY:1 CAPSULE(S);?
     Route: 048
     Dates: start: 20190823, end: 20190824
  2. NORCO [Concomitant]
     Active Substance: ACETAMINOPHEN\HYDROCODONE BITARTRATE
  3. PREDNISONE. [Concomitant]
     Active Substance: PREDNISONE
  4. GABAPENTIN 300 MG CAPS [Suspect]
     Active Substance: GABAPENTIN
     Indication: NEUROPATHY PERIPHERAL
     Dosage: ?          QUANTITY:1 CAPSULE(S);?
     Route: 048
     Dates: start: 20190823, end: 20190824

REACTIONS (26)
  - Dizziness [None]
  - Irritability [None]
  - Disorientation [None]
  - Hypersensitivity [None]
  - Disturbance in attention [None]
  - Mobility decreased [None]
  - Nausea [None]
  - Drug ineffective [None]
  - Asthenia [None]
  - Depression [None]
  - Malaise [None]
  - Muscular weakness [None]
  - Neuralgia [None]
  - Vision blurred [None]
  - Inadequate analgesia [None]
  - Product physical issue [None]
  - Memory impairment [None]
  - Confusional state [None]
  - Fatigue [None]
  - Allergic reaction to excipient [None]
  - Somnolence [None]
  - Allergy to animal [None]
  - Anxiety [None]
  - Nervous system disorder [None]
  - Amnesia [None]
  - Mood altered [None]
